FAERS Safety Report 8820932 (Version 2)
Quarter: 2012Q4

REPORT INFORMATION
  Report Type: 
  Country: US (occurrence: US)
  Receive Date: 20121002
  Receipt Date: 20121025
  Transmission Date: 20130627
  Serious: No
  Sender: FDA-Public Use
  Company Number: US-009507513-1208USA011724

PATIENT
  Sex: Male

DRUGS (4)
  1. VICTRELIS [Suspect]
     Indication: HEPATITIS C
     Dosage: UNK
     Route: 048
     Dates: start: 20120827
  2. REBETOL [Suspect]
     Indication: HEPATITIS C
     Dosage: UNK
     Route: 048
     Dates: start: 20120728
  3. PEGASYS [Suspect]
     Indication: HEPATITIS C
     Dosage: UNK
     Dates: start: 20120727
  4. PEGINTRON [Suspect]

REACTIONS (7)
  - Mental disorder [Unknown]
  - Dyspnoea [Unknown]
  - Mood swings [Unknown]
  - Depression [Unknown]
  - Fatigue [Unknown]
  - Dysgeusia [Unknown]
  - Fatigue [Unknown]
